FAERS Safety Report 4497932-5 (Version None)
Quarter: 2004Q4

REPORT INFORMATION
  Report Type: 
  Country: None (occurrence: None)
  Receive Date: 20041105
  Receipt Date: 20041001
  Transmission Date: 20050328
  Serious: No
  Sender: FDA-Public Use
  Company Number: 2004UW20744

PATIENT
  Sex: Female

DRUGS (1)
  1. TAMOXIFEN CITRATE [Suspect]
     Indication: OVARIAN CANCER
     Dates: start: 20040901

REACTIONS (2)
  - BLINDNESS UNILATERAL [None]
  - ILL-DEFINED DISORDER [None]
